FAERS Safety Report 19186351 (Version 4)
Quarter: 2021Q4

REPORT INFORMATION
  Report Type: Spontaneous
  Country: US (occurrence: US)
  Receive Date: 20210427
  Receipt Date: 20211109
  Transmission Date: 20220304
  Serious: No
  Sender: FDA-Public Use
  Company Number: US-VERTEX PHARMACEUTICALS-2021-006418

PATIENT
  Age: 60 Year
  Sex: Female
  Weight: 44 kg

DRUGS (45)
  1. TRIKAFTA [Suspect]
     Active Substance: ELEXACAFTOR\IVACAFTOR\TEZACAFTOR
     Indication: Cystic fibrosis
     Dosage: 1/2 OF MORNING TAB
     Route: 048
     Dates: start: 20200920, end: 2020
  2. TRIKAFTA [Suspect]
     Active Substance: ELEXACAFTOR\IVACAFTOR\TEZACAFTOR
     Dosage: 1 AM TAB EVERY 3 DAYS
     Route: 048
     Dates: start: 2020
  3. PROAIR HFA [Concomitant]
     Active Substance: ALBUTEROL SULFATE
     Dosage: 2 PUFFS EVERY 2 HOURS AS NEEDED
  4. XANAX [Concomitant]
     Active Substance: ALPRAZOLAM
     Dosage: 1 DOSAGE FORM 2 TIMES A DAY
     Route: 048
  5. ZITHROMAX [Concomitant]
     Active Substance: AZITHROMYCIN DIHYDRATE
     Dosage: 1 DOSAGE FORM 3 TIMES WEEK (M/F/W)
     Route: 048
  6. PENLAC [Concomitant]
     Active Substance: CICLOPIROX
  7. CALCIUM [Concomitant]
     Active Substance: CALCIUM
     Route: 048
  8. VITAMIN D3 [Concomitant]
     Active Substance: CHOLECALCIFEROL
     Dosage: 5000 UNITS DAILY
     Route: 048
  9. DOCUSATE SODIUM [Concomitant]
     Active Substance: DOCUSATE SODIUM
     Route: 048
  10. PULMOZYME [Concomitant]
     Active Substance: DORNASE ALFA
     Dosage: 2.5 ML NEBULIZATION 2 TIMES A DAY
  11. DIFLUCAN [Concomitant]
     Active Substance: FLUCONAZOLE
     Dosage: 1 DOSAGE FORM ONCE FOR ONE DOSE
     Route: 048
  12. ADVAIR HFA [Concomitant]
     Active Substance: FLUTICASONE PROPIONATE\SALMETEROL XINAFOATE
     Dosage: 100-50MCG/PUFF, 1 PUFF VERY 12 HOURS
  13. FLONASE [Concomitant]
     Active Substance: FLUTICASONE PROPIONATE
     Dosage: 1 PUFF BID
  14. NOVOLOG [Concomitant]
     Active Substance: INSULIN ASPART
     Dosage: 100 UNIT/ML, 2 UNITS EVERY TIMES A DAY
  15. DUONEB [Concomitant]
     Active Substance: ALBUTEROL SULFATE\IPRATROPIUM BROMIDE
     Dosage: 0.5-2.5 MG/3ML, 3ML EVERY 4 HOURS
  16. LACTOBACILLUS ACIDOPHILUS [Concomitant]
     Active Substance: LACTOBACILLUS ACIDOPHILUS
     Route: 048
  17. GLYCOLAX [Concomitant]
     Active Substance: POLYETHYLENE GLYCOL 3350
     Dosage: 2 TIMES A DAY
     Route: 048
  18. TOBI [Concomitant]
     Active Substance: TOBRAMYCIN
     Dosage: 300MG/5ML, EVERY 12 HOURS
  19. VALTREX [Concomitant]
     Active Substance: VALACYCLOVIR HYDROCHLORIDE
  20. RETINOL [Concomitant]
     Active Substance: RETINOL
     Dosage: 10000 UNITS
  21. VITAMIN E [Concomitant]
     Active Substance: .ALPHA.-TOCOPHEROL
     Dosage: 400 UNIT
  22. TYLENOL [Concomitant]
     Active Substance: ACETAMINOPHEN
     Dosage: 2 TIMES A DAY
     Route: 048
  23. FOSAMAX [Concomitant]
     Active Substance: ALENDRONATE SODIUM
     Dosage: 1 DOSAGE FORM, ONCE A WEEK
     Route: 048
  24. BIOTIN [Concomitant]
     Active Substance: BIOTIN
     Route: 048
  25. PULMICORT TURBUHALER [Concomitant]
     Active Substance: BUDESONIDE
     Dosage: 1 MG/2 ML, DAILY
  26. CIPRO [Concomitant]
     Active Substance: CIPROFLOXACIN HYDROCHLORIDE
  27. CLEOCIN [CLINDAMYCIN PHOSPHATE] [Concomitant]
  28. LEVMETAMFETAMINE [Concomitant]
     Active Substance: LEVMETAMFETAMINE
  29. GLUCOPHAGE [Concomitant]
     Active Substance: METFORMIN HYDROCHLORIDE
  30. PRANDIN [Concomitant]
     Active Substance: REPAGLINIDE
     Dosage: 1 DOSAGE FORM WITH LUNCH, 1/2 WITH LUNCH + 1WITH DINNER
  31. DIETARY SUPPLEMENT\RESVERATROL [Concomitant]
     Active Substance: DIETARY SUPPLEMENT\RESVERATROL
     Route: 048
  32. ASTELIN [Concomitant]
     Active Substance: AZELASTINE HYDROCHLORIDE
  33. ZYRTEC [Concomitant]
     Active Substance: CETIRIZINE HYDROCHLORIDE
     Dosage: 1 DOSAGE FORM DAILY
     Route: 048
  34. COMBIVENT RESPIMAT [Concomitant]
     Active Substance: ALBUTEROL SULFATE\IPRATROPIUM BROMIDE
     Dosage: 20-100 MCG/ACTUTAION, 1 PUFF EVERY 4 HRS
  35. MYCOSTATIN [Concomitant]
     Active Substance: NYSTATIN
     Dosage: 100000 UNIT/ML
     Route: 048
  36. COLACE [Concomitant]
     Active Substance: DOCUSATE SODIUM
     Route: 048
  37. LASIX [Concomitant]
     Active Substance: FUROSEMIDE
     Dosage: 1 DOSAGE FORM ONCE FOR 1 DOSE
     Route: 048
  38. PREDNISOLONE [Concomitant]
     Active Substance: PREDNISOLONE
     Dosage: 2 DOSAGE FORM, DAILY
  39. DIFFERIN [Concomitant]
     Active Substance: ADAPALENE
  40. VITAMIN C [Concomitant]
     Active Substance: ASCORBIC ACID
     Dosage: 1000 MG, DAILY
     Route: 048
  41. CAYSTON [Concomitant]
     Active Substance: AZTREONAM
     Dosage: 75MG/ML, 3 TIMES A DAY
  42. VIBRAMYCIN [DOXYCYCLINE HYCLATE] [Concomitant]
  43. MOMETASONE [Concomitant]
     Active Substance: MOMETASONE
  44. WIXELA INHUB [Concomitant]
     Active Substance: FLUTICASONE PROPIONATE\SALMETEROL XINAFOATE
     Dosage: 250-50MCG/DOSE, 1 PUFF EVERY 12 HRS
  45. SODIUM CHLORIDE [Concomitant]
     Active Substance: SODIUM CHLORIDE

REACTIONS (2)
  - Acne [Recovering/Resolving]
  - Scar [Recovering/Resolving]

NARRATIVE: CASE EVENT DATE: 20201001
